FAERS Safety Report 10143908 (Version 1)
Quarter: 2014Q2

REPORT INFORMATION
  Report Type: Spontaneous
  Country: FR (occurrence: FR)
  Receive Date: 20140430
  Receipt Date: 20140430
  Transmission Date: 20141212
  Serious: Yes (Hospitalization)
  Sender: FDA-Public Use
  Company Number: FR-TEVA-478035ISR

PATIENT
  Age: 77 Year
  Sex: Female

DRUGS (1)
  1. PACLITAXEL TEVA [Suspect]
     Indication: OVARIAN CANCER
     Dosage: 270 MILLIGRAM DAILY; 3 PACLITAXEL TEVA: ONE 150 MG, ONE 100 MG AND ONE 30 MG
     Route: 041
     Dates: start: 20091127, end: 20091127

REACTIONS (1)
  - Back pain [Recovered/Resolved]
